FAERS Safety Report 7992506-3 (Version None)
Quarter: 2011Q4

REPORT INFORMATION
  Report Type: 
  Country: None (occurrence: None)
  Receive Date: 20111219
  Receipt Date: 20111215
  Transmission Date: 20120403
  Serious: Yes (Other)
  Sender: FDA-Public Use
  Company Number: US-PFIZER INC-2011278798

PATIENT
  Sex: Male
  Weight: 86 kg

DRUGS (4)
  1. DIOVAN HCT [Concomitant]
     Indication: HYPERTENSION
     Dosage: UNK
  2. METOPROLOL [Concomitant]
     Indication: HEART RATE ABNORMAL
     Dosage: UNK
  3. PRISTIQ [Suspect]
     Indication: ANXIETY DISORDER
     Dosage: 50 MG, 1X/DAY
     Route: 048
     Dates: start: 20111110
  4. SIMVASTATIN [Concomitant]
     Indication: BLOOD CHOLESTEROL INCREASED
     Dosage: 10 MG, UNK

REACTIONS (6)
  - TINNITUS [None]
  - LOSS OF CONSCIOUSNESS [None]
  - ANXIETY [None]
  - FATIGUE [None]
  - INFLUENZA LIKE ILLNESS [None]
  - YAWNING [None]
